FAERS Safety Report 6768876-0 (Version None)
Quarter: 2010Q2

REPORT INFORMATION
  Report Type: 
  Country: None (occurrence: None)
  Receive Date: 20100611
  Receipt Date: 20100527
  Transmission Date: 20101027
  Serious: Yes (Hospitalization)
  Sender: FDA-Public Use
  Company Number: CTI-01186-2010

PATIENT
  Sex: Female

DRUGS (1)
  1. MEIACT (MEIACT MS - CEFDITOREN PIVOXIL) (NOT SPECIFIED) [Suspect]
     Indication: FOLLICULITIS
     Dosage: 100 MG, ONCE ORAL
     Dates: start: 20100413, end: 20100413

REACTIONS (3)
  - ANAPHYLACTIC SHOCK [None]
  - DEFAECATION URGENCY [None]
  - NO THERAPEUTIC RESPONSE [None]
